FAERS Safety Report 4387681-6 (Version None)
Quarter: 2004Q2

REPORT INFORMATION
  Report Type: 
  Country: None (occurrence: None)
  Receive Date: 20040629
  Receipt Date: 20040629
  Transmission Date: 20050107
  Serious: Yes (Hospitalization)
  Sender: FDA-Public Use
  Company Number: None

PATIENT
  Age: 38 Year
  Sex: Female

DRUGS (4)
  1. COUMADIN [Suspect]
     Indication: HEART VALVE REPLACEMENT
  2. LOPRESSOR [Concomitant]
  3. CHROMAGIN [Concomitant]
  4. DEPO-PROVERA [Concomitant]

REACTIONS (4)
  - ANAEMIA [None]
  - INTERNATIONAL NORMALISED RATIO DECREASED [None]
  - INTERNATIONAL NORMALISED RATIO INCREASED [None]
  - VAGINAL HAEMORRHAGE [None]
